FAERS Safety Report 12759060 (Version 1)
Quarter: 2016Q3

REPORT INFORMATION
  Report Type: Spontaneous
  Country: US (occurrence: US)
  Receive Date: 20160915
  Receipt Date: 20160915
  Transmission Date: 20161109
  Serious: No
  Sender: FDA-Public Use
  Company Number: None

PATIENT
  Age: 55 Year
  Sex: Female

DRUGS (1)
  1. STELARA [Suspect]
     Active Substance: USTEKINUMAB
     Indication: PSORIASIS
     Dosage: 90MG Q12W SQ
     Route: 058
     Dates: start: 20150923, end: 20160620

REACTIONS (6)
  - Malaise [None]
  - Impaired work ability [None]
  - Oropharyngeal pain [None]
  - Immune system disorder [None]
  - Abasia [None]
  - Blister [None]
